FAERS Safety Report 12911868 (Version 1)
Quarter: 2016Q4

REPORT INFORMATION
  Report Type: Spontaneous
  Country: US (occurrence: US)
  Receive Date: 20161102
  Receipt Date: 20161102
  Transmission Date: 20170207
  Serious: Yes (Hospitalization)
  Sender: FDA-Public Use
  Company Number: None

PATIENT
  Age: 67 Year
  Sex: Male
  Weight: 125.8 kg

DRUGS (3)
  1. LISINOPRIL. [Suspect]
     Active Substance: LISINOPRIL
     Indication: DIABETES MELLITUS
     Route: 048
     Dates: start: 20140912, end: 20160819
  2. LISINOPRIL. [Suspect]
     Active Substance: LISINOPRIL
     Indication: CHRONIC KIDNEY DISEASE
     Route: 048
     Dates: start: 20140912, end: 20160819
  3. LISINOPRIL. [Suspect]
     Active Substance: LISINOPRIL
     Indication: HYPERTENSION
     Route: 048
     Dates: start: 20140912, end: 20160819

REACTIONS (1)
  - Angioedema [None]

NARRATIVE: CASE EVENT DATE: 20160819
